FAERS Safety Report 7455575-5 (Version None)
Quarter: 2011Q2

REPORT INFORMATION
  Report Type: 
  Country: None (occurrence: None)
  Receive Date: 20110503
  Receipt Date: 20110429
  Transmission Date: 20111010
  Serious: Yes (Hospitalization)
  Sender: FDA-Public Use
  Company Number: BR-ROCHE-771421

PATIENT
  Sex: Male
  Weight: 68 kg

DRUGS (3)
  1. RIBAVIRIN [Concomitant]
  2. CAPTOPRIL [Concomitant]
     Indication: HYPERTENSION
  3. PEGINTERFERON ALFA-2A [Suspect]
     Indication: HEPATITIS C
     Dosage: STOP DATE: APPROXIMAETLY APRIL 2011
     Route: 058
     Dates: start: 20110101, end: 20110401

REACTIONS (1)
  - GASTRIC NEOPLASM [None]
